FAERS Safety Report 6111166-X (Version None)
Quarter: 2009Q1

REPORT INFORMATION
  Report Type: 
  Country: None (occurrence: None)
  Receive Date: 20090311
  Receipt Date: 20080923
  Transmission Date: 20090719
  Serious: No
  Sender: FDA-Public Use
  Company Number: US-KINGPHARMUSA00001-K200801118

PATIENT
  Sex: Male

DRUGS (1)
  1. ALTACE [Suspect]
     Dates: start: 20080301, end: 20080922

REACTIONS (6)
  - ANOREXIA [None]
  - GASTRITIS [None]
  - MALAISE [None]
  - NAUSEA [None]
  - VOMITING [None]
  - WEIGHT DECREASED [None]
